FAERS Safety Report 9546425 (Version 1)
Quarter: 2013Q3

REPORT INFORMATION
  Report Type: Spontaneous
  Country: US (occurrence: US)
  Receive Date: 20130923
  Receipt Date: 20130923
  Transmission Date: 20140515
  Serious: No
  Sender: FDA-Public Use
  Company Number: US-GLAXOSMITHKLINE-A1033515A

PATIENT
  Age: 80 Year
  Sex: Male

DRUGS (1)
  1. ABREVA [Suspect]
     Indication: SENSITIVITY OF TEETH
     Dates: start: 201306

REACTIONS (3)
  - Application site reaction [Not Recovered/Not Resolved]
  - Application site hyperaesthesia [Not Recovered/Not Resolved]
  - Product quality issue [Unknown]
